FAERS Safety Report 9945935 (Version 1)
Quarter: 2014Q1

REPORT INFORMATION
  Report Type: Spontaneous
  Country: US (occurrence: US)
  Receive Date: 20140303
  Receipt Date: 20140303
  Transmission Date: 20141002
  Serious: No
  Sender: FDA-Public Use
  Company Number: US-AMGEN-USASP2013068702

PATIENT
  Age: 57 Year
  Sex: Female
  Weight: 65.76 kg

DRUGS (13)
  1. ENBREL [Suspect]
     Indication: PRODUCT USED FOR UNKNOWN INDICATION
     Dosage: 50 MG, QWK
     Route: 058
  2. PREDNISONE [Concomitant]
     Dosage: 1 MG, UNK
  3. LORTAB                             /00607101/ [Concomitant]
     Dosage: 5-500 MG
  4. KEPPRA [Concomitant]
     Dosage: 500 MG, UNK
  5. ZOLOFT [Concomitant]
     Dosage: 100 MG, UNK
  6. FOLIC ACID [Concomitant]
     Dosage: UNK
  7. METHOTREXATE [Concomitant]
     Dosage: 2.5 MG, UNK
  8. ESTRADIOL [Concomitant]
     Dosage: 0.05 MG, UNK
  9. LORAZEPAM [Concomitant]
     Dosage: 1 MG, UNK
  10. PRILOSEC                           /00661201/ [Concomitant]
     Dosage: 20 MG, UNK
  11. FLAXSEED OIL [Concomitant]
     Dosage: UNK
  12. VITAMIN D                          /00107901/ [Concomitant]
     Dosage: 1000 UNIT, UNK
  13. VITAMIN C                          /00008001/ [Concomitant]
     Dosage: 500 MG, ONE DAILY

REACTIONS (1)
  - Abdominal discomfort [Unknown]
